FAERS Safety Report 7760115-7 (Version None)
Quarter: 2011Q3

REPORT INFORMATION
  Report Type: 
  Country: None (occurrence: None)
  Receive Date: 20110919
  Receipt Date: 20110908
  Transmission Date: 20111222
  Serious: Yes (Hospitalization)
  Sender: FDA-Public Use
  Company Number: JP-AMGEN-JPNCT2011047717

PATIENT
  Age: 65 Year
  Sex: Female

DRUGS (1)
  1. DENOSUMAB [Suspect]
     Indication: BREAST CANCER
     Dosage: UNK, Q4WK
     Route: 058
     Dates: start: 20110325, end: 20110811

REACTIONS (1)
  - INTERSTITIAL LUNG DISEASE [None]
